FAERS Safety Report 16166074 (Version 2)
Quarter: 2019Q2

REPORT INFORMATION
  Report Type: Spontaneous
  Country: DE (occurrence: DE)
  Receive Date: 20190406
  Receipt Date: 20190520
  Transmission Date: 20190711
  Serious: Yes (Other)
  Sender: FDA-Public Use
  Company Number: DE-BRISTOL-MYERS SQUIBB COMPANY-BMS-2019-026745

PATIENT
  Age: 39 Year
  Sex: Male

DRUGS (2)
  1. ASPIRIN. [Concomitant]
     Active Substance: ASPIRIN
     Indication: PRIMARY MYELOFIBROSIS
     Dosage: 100 MILLIGRAM, QD
     Route: 048
     Dates: start: 20190308
  2. SPRYCEL [Suspect]
     Active Substance: DASATINIB
     Indication: CHRONIC MYELOID LEUKAEMIA
     Dosage: 100 MILLIGRAM
     Route: 048
     Dates: start: 20190308

REACTIONS (1)
  - Sunburn [Recovering/Resolving]

NARRATIVE: CASE EVENT DATE: 20190310
